FAERS Safety Report 24601276 (Version 2)
Quarter: 2024Q4

REPORT INFORMATION
  Report Type: Spontaneous
  Country: US (occurrence: US)
  Receive Date: 20241111
  Receipt Date: 20241113
  Transmission Date: 20250115
  Serious: Yes (Death)
  Sender: UCB
  Company Number: US-UCBSA-2024057247

PATIENT
  Age: 36 Year
  Sex: Male

DRUGS (7)
  1. MIDAZOLAM [Suspect]
     Active Substance: MIDAZOLAM
     Indication: Product used for unknown indication
     Dosage: UNK
  2. CEFEPIME [Suspect]
     Active Substance: CEFEPIME HYDROCHLORIDE
     Indication: Arteriovenous fistula site infection
     Dosage: UNK
  3. VANCOMYCIN [Suspect]
     Active Substance: VANCOMYCIN
     Indication: Arteriovenous fistula site infection
     Dosage: UNK
  4. CEFTRIAXONE [Suspect]
     Active Substance: CEFTRIAXONE
     Indication: Arteriovenous fistula site infection
     Dosage: UNK
  5. CEFDINIR [Suspect]
     Active Substance: CEFDINIR
     Indication: Arteriovenous fistula site infection
     Dosage: UNK
  6. LEVOFLOXACIN [Suspect]
     Active Substance: LEVOFLOXACIN
     Indication: Arteriovenous fistula site infection
     Dosage: UNK
  7. FENTANYL [Suspect]
     Active Substance: FENTANYL
     Indication: Product used for unknown indication
     Dosage: UNK

REACTIONS (2)
  - Death [Fatal]
  - Fixed eruption [Unknown]
